FAERS Safety Report 6537842-2 (Version None)
Quarter: 2010Q1

REPORT INFORMATION
  Report Type: 
  Country: None (occurrence: None)
  Receive Date: 20100114
  Receipt Date: 20100105
  Transmission Date: 20100710
  Serious: Yes (Other)
  Sender: FDA-Public Use
  Company Number: JP-PFIZER INC-2009315273

PATIENT

DRUGS (1)
  1. ZITHROMAX [Suspect]
     Route: 048
     Dates: start: 20091001

REACTIONS (2)
  - DRUG ERUPTION [None]
  - PNEUMONIA [None]
